FAERS Safety Report 6679329-2 (Version None)
Quarter: 2010Q2

REPORT INFORMATION
  Report Type: 
  Country: None (occurrence: None)
  Receive Date: 20100413
  Receipt Date: 20100330
  Transmission Date: 20101027
  Serious: Yes (Hospitalization)
  Sender: FDA-Public Use
  Company Number: NL-MEDIMMUNE-MEDI-0011030

PATIENT
  Sex: Male
  Weight: 9.8 kg

DRUGS (7)
  1. SYNAGIS [Suspect]
     Route: 030
     Dates: start: 20091013, end: 20091208
  2. SYNAGIS [Suspect]
     Route: 030
     Dates: start: 20100202, end: 20100401
  3. FUROSEMIDE [Concomitant]
  4. SPIRONOLACTONE [Concomitant]
  5. CAPTOPRIL [Concomitant]
  6. CARVEDILOL [Concomitant]
  7. CARBASALAATCALCIUM [Concomitant]

REACTIONS (4)
  - LISTLESS [None]
  - NASOPHARYNGITIS [None]
  - PYREXIA [None]
  - RESPIRATORY SYNCYTIAL VIRUS INFECTION [None]
